FAERS Safety Report 24116372 (Version 1)
Quarter: 2024Q3

REPORT INFORMATION
  Report Type: Spontaneous
  Country: US (occurrence: US)
  Receive Date: 20240722
  Receipt Date: 20240722
  Transmission Date: 20241017
  Serious: No
  Sender: ASTELLAS
  Company Number: US-ASTELLAS-2024US000879

PATIENT
  Age: 60 Year
  Sex: Male

DRUGS (1)
  1. MYRBETRIQ [Suspect]
     Active Substance: MIRABEGRON
     Indication: Product used for unknown indication
     Dosage: 25 MG, ONCE DAILY (TOOK FOR 9 DAYS)
     Route: 065
     Dates: end: 20240107

REACTIONS (5)
  - Tinnitus [Unknown]
  - Nasopharyngitis [Unknown]
  - Sinus congestion [Unknown]
  - Cough [Unknown]
  - Eustachian tube obstruction [Unknown]
